FAERS Safety Report 20703612 (Version 1)
Quarter: 2022Q2

REPORT INFORMATION
  Report Type: Spontaneous
  Country: US (occurrence: US)
  Receive Date: 20220413
  Receipt Date: 20220413
  Transmission Date: 20220720
  Serious: No
  Sender: FDA-Public Use
  Company Number: US-drreddys-SPO/USA/22/0148794

PATIENT
  Age: 47 Year
  Sex: Female

DRUGS (1)
  1. ZENATANE [Suspect]
     Active Substance: ISOTRETINOIN
     Indication: Product used for unknown indication
     Dosage: RMA ISSUE DATE: 9 MARCH 2022 11:03:41 AM, 12 FEBRUARY 2022 12:12:14 PM AND 13 JANUARY 2022 01:31:21

REACTIONS (1)
  - Treatment noncompliance [Unknown]
